FAERS Safety Report 5983670-6 (Version None)
Quarter: 2008Q4

REPORT INFORMATION
  Report Type: 
  Country: None (occurrence: None)
  Receive Date: 20081205
  Receipt Date: 20081205
  Transmission Date: 20090506
  Serious: Yes (Hospitalization)
  Sender: FDA-Public Use
  Company Number: None

PATIENT
  Sex: Male
  Weight: 153.21 kg

DRUGS (2)
  1. CISPLATIN [Suspect]
     Dosage: 421 MG
     Dates: end: 20081027
  2. TAXOL [Suspect]
     Dosage: 841 MG
     Dates: end: 20081027

REACTIONS (1)
  - PNEUMONIA [None]
